FAERS Safety Report 14274362 (Version 2)
Quarter: 2018Q1

REPORT INFORMATION
  Report Type: Spontaneous
  Country: RO (occurrence: RO)
  Receive Date: 20171212
  Receipt Date: 20180214
  Transmission Date: 20180508
  Serious: Yes (Other)
  Sender: FDA-Public Use
  Company Number: RO-VALIDUS PHARMACEUTICALS LLC-RO-2017VAL001641

PATIENT
  Age: 30 Month
  Sex: Female

DRUGS (3)
  1. FUROSEMIDE. [Suspect]
     Active Substance: FUROSEMIDE
     Indication: OLIGURIA
     Dosage: UNK
     Route: 065
  2. MANNITOL. [Suspect]
     Active Substance: MANNITOL
     Indication: OLIGURIA
     Dosage: UNK
     Route: 065
  3. ASPIRIN                            /00002701/ [Suspect]
     Active Substance: ASPIRIN
     Indication: THROMBOCYTOPENIA
     Dosage: 8 MG/KG, QD
     Route: 048

REACTIONS (6)
  - Off label use [Unknown]
  - Anaemia [Unknown]
  - Seizure [Recovered/Resolved]
  - Therapeutic response unexpected [Unknown]
  - Product use in unapproved indication [Unknown]
  - Drug administration error [Unknown]
